FAERS Safety Report 14658608 (Version 1)
Quarter: 2018Q1

REPORT INFORMATION
  Report Type: Spontaneous
  Country: SE (occurrence: SE)
  Receive Date: 20180320
  Receipt Date: 20180320
  Transmission Date: 20180509
  Serious: Yes (Life-Threatening)
  Sender: FDA-Public Use
  Company Number: PHHY2018SE048384

PATIENT
  Sex: Female

DRUGS (1)
  1. FARYDAK [Suspect]
     Active Substance: PANOBINOSTAT
     Indication: THROAT CANCER
     Route: 065

REACTIONS (2)
  - Choking [Recovered/Resolved]
  - Product use in unapproved indication [Unknown]
